FAERS Safety Report 5157173-5 (Version None)
Quarter: 2006Q4

REPORT INFORMATION
  Report Type: 
  Country: None (occurrence: None)
  Receive Date: 20061115
  Receipt Date: 20061102
  Transmission Date: 20070319
  Serious: Yes (Other)
  Sender: FDA-Public Use
  Company Number: 2006139299

PATIENT
  Sex: Female
  Weight: 56.6996 kg

DRUGS (4)
  1. LYRICA [Suspect]
     Indication: RADICULOPATHY
     Dosage: 75 MG (75 MG, 1 IN 1 D)
     Dates: start: 20060601
  2. FOSAMAX [Concomitant]
  3. GLUCOSAMINE (GLUCOSAMINE) [Concomitant]
  4. MULTIVITAMIN [Concomitant]

REACTIONS (3)
  - DRUG WITHDRAWAL SYNDROME [None]
  - POLLAKIURIA [None]
  - SOMNOLENCE [None]
